FAERS Safety Report 6044649-1 (Version None)
Quarter: 2009Q1

REPORT INFORMATION
  Report Type: 
  Country: None (occurrence: None)
  Receive Date: 20090120
  Receipt Date: 20090114
  Transmission Date: 20090719
  Serious: Yes (Other)
  Sender: FDA-Public Use
  Company Number: US-PFIZER INC-2008089968

PATIENT

DRUGS (2)
  1. LYRICA [Suspect]
  2. ALL OTHER NON-THERAPEUTIC PRODUCTS [Suspect]

REACTIONS (2)
  - CONVULSION [None]
  - DRUG SCREEN POSITIVE [None]
